FAERS Safety Report 6416569-1 (Version None)
Quarter: 2009Q4

REPORT INFORMATION
  Report Type: 
  Country: None (occurrence: None)
  Receive Date: 20091022
  Receipt Date: 20091006
  Transmission Date: 20100525
  Serious: Yes (Life-Threatening, Hospitalization)
  Sender: FDA-Public Use
  Company Number: 20097569

PATIENT
  Sex: Male

DRUGS (1)
  1. LIORESAL [Suspect]
     Indication: MUSCLE SPASTICITY
     Dosage: 25,444.6 MCG, DAILY, INTRATHECAL - S
     Route: 037

REACTIONS (7)
  - ACCIDENTAL OVERDOSE [None]
  - CARDIAC ARREST [None]
  - CONVULSION [None]
  - HYPOXIC ENCEPHALOPATHY [None]
  - LOWER RESPIRATORY TRACT INFECTION [None]
  - RESPIRATORY ARREST [None]
  - SPEECH DISORDER [None]
